FAERS Safety Report 20689678 (Version 1)
Quarter: 2022Q2

REPORT INFORMATION
  Report Type: Spontaneous
  Country: US (occurrence: None)
  Receive Date: 20220407
  Receipt Date: 20220407
  Transmission Date: 20220721
  Serious: No
  Sender: FDA-Public Use
  Company Number: None

PATIENT
  Sex: Male

DRUGS (2)
  1. TESTOSTERONE CYPIONATE [Suspect]
     Active Substance: TESTOSTERONE CYPIONATE
     Indication: Hormone replacement therapy
     Dosage: FREQUENCY : TWICE A WEEK;?
     Route: 030
     Dates: start: 20201104
  2. Clomiphene citrate 50mg/pregnenolone [Concomitant]
     Dates: start: 20201104

REACTIONS (4)
  - Injection site reaction [None]
  - Injection site pain [None]
  - Injection site pruritus [None]
  - Recalled product administered [None]
